FAERS Safety Report 10709100 (Version 2)
Quarter: 2015Q1

REPORT INFORMATION
  Report Type: Spontaneous
  Country: GB (occurrence: GB)
  Receive Date: 20150114
  Receipt Date: 20150122
  Transmission Date: 20150721
  Serious: Yes (Death, Hospitalization)
  Sender: FDA-Public Use
  Company Number: GB-RANBAXY-2006RR-01847

PATIENT
  Age: 26 Year
  Sex: Female

DRUGS (1)
  1. IBUPROFEN. [Suspect]
     Active Substance: IBUPROFEN
     Indication: PRODUCT USED FOR UNKNOWN INDICATION
     Dosage: 105 G, UNK
     Route: 065

REACTIONS (4)
  - Depressed level of consciousness [Fatal]
  - Intentional overdose [Fatal]
  - Toxicity to various agents [Fatal]
  - Metabolic acidosis [Fatal]
